FAERS Safety Report 24175976 (Version 1)
Quarter: 2024Q3

REPORT INFORMATION
  Report Type: Report from Study
  Country: US (occurrence: US)
  Receive Date: 20240806
  Receipt Date: 20240806
  Transmission Date: 20241016
  Serious: Yes (Hospitalization)
  Sender: ABBVIE
  Company Number: US-ABBVIE-5842155

PATIENT
  Age: 63 Year
  Sex: Female

DRUGS (1)
  1. IMBRUVICA [Suspect]
     Active Substance: IBRUTINIB
     Indication: Non-Hodgkin^s lymphoma
     Route: 048

REACTIONS (5)
  - Swelling [Recovering/Resolving]
  - Heart rate irregular [Unknown]
  - Orthostatic hypotension [Unknown]
  - Contusion [Recovering/Resolving]
  - White matter lesion [Unknown]

NARRATIVE: CASE EVENT DATE: 20240601
